FAERS Safety Report 20615313 (Version 3)
Quarter: 2025Q1

REPORT INFORMATION
  Report Type: Spontaneous
  Country: US (occurrence: US)
  Receive Date: 20220321
  Receipt Date: 20250103
  Transmission Date: 20250408
  Serious: Yes (Other)
  Sender: SANOFI AVENTIS
  Company Number: US-SA-SAC20220315000221

PATIENT
  Sex: Female
  Weight: 77.77 kg

DRUGS (4)
  1. DUPIXENT [Suspect]
     Active Substance: DUPILUMAB
     Indication: Dermatitis atopic
     Dosage: 300 MG, QOW
     Route: 058
     Dates: start: 202112
  2. ZOLOFT [Suspect]
     Active Substance: SERTRALINE HYDROCHLORIDE
  3. RILUZOLE [Concomitant]
     Active Substance: RILUZOLE
  4. RADICAVA [Concomitant]
     Active Substance: EDARAVONE

REACTIONS (7)
  - Amyotrophic lateral sclerosis [Unknown]
  - Skin disorder [Unknown]
  - Pruritus [Unknown]
  - Discomfort [Unknown]
  - Somnolence [Unknown]
  - Depressed mood [Unknown]
  - Decreased interest [Unknown]

NARRATIVE: CASE EVENT DATE: 20240901
